FAERS Safety Report 4350067-4 (Version None)
Quarter: 2004Q2

REPORT INFORMATION
  Report Type: 
  Country: None (occurrence: None)
  Receive Date: 20040426
  Receipt Date: 20040415
  Transmission Date: 20050107
  Serious: Yes (Death)
  Sender: FDA-Public Use
  Company Number: S04-USA-01562-01

PATIENT
  Age: 18 Year
  Sex: Female
  Weight: 69.4003 kg

DRUGS (4)
  1. CELEXA [Suspect]
     Indication: DEPRESSION
     Dates: start: 20040224, end: 20040224
  2. CELEXA [Suspect]
     Indication: DEPRESSION
     Dosage: 40 MG QD PO
     Route: 048
     Dates: end: 20040224
  3. CELEXA (CITALOPRAM HYDROBROMIDE)S [Concomitant]
     Indication: DEPRESSION
     Dosage: 60 MG QD PO
     Route: 048
  4. NYQUIL [Suspect]
     Dates: start: 20040224, end: 20040224

REACTIONS (11)
  - ANOXIA [None]
  - BRAIN OEDEMA [None]
  - COMA [None]
  - COMPLETED SUICIDE [None]
  - DEPRESSION [None]
  - ELECTROENCEPHALOGRAM ABNORMAL [None]
  - HEPATIC CONGESTION [None]
  - OEDEMA [None]
  - OVERDOSE [None]
  - PNEUMONIA [None]
  - SPLEEN CONGESTION [None]
